FAERS Safety Report 6787894-X (Version None)
Quarter: 2010Q2

REPORT INFORMATION
  Report Type: 
  Country: None (occurrence: None)
  Receive Date: 20100623
  Receipt Date: 20071101
  Transmission Date: 20101027
  Serious: No
  Sender: FDA-Public Use
  Company Number: US-PFIZER INC-2007089139

PATIENT
  Sex: Female
  Weight: 65 kg

DRUGS (4)
  1. DEPO-PROVERA SUSPENSION/INJ [Suspect]
     Indication: CONTRACEPTION
     Dosage: FIRST INJECTION/EVERY 3 MONTHS
     Route: 030
     Dates: start: 20020101, end: 20020101
  2. DEPO-PROVERA SUSPENSION/INJ [Suspect]
     Dosage: EVERY 3 MONTHS
     Route: 030
     Dates: start: 20070601, end: 20070601
  3. DEPO-PROVERA SUSPENSION/INJ [Suspect]
     Dosage: MOST RECENT INJECTION/EVERY 3 MONTHS
     Route: 030
     Dates: start: 20070801, end: 20070801
  4. ATENOLOL [Concomitant]

REACTIONS (5)
  - ABDOMINAL DISTENSION [None]
  - BACK PAIN [None]
  - FLATULENCE [None]
  - HYPOMENORRHOEA [None]
  - MENORRHAGIA [None]
